FAERS Safety Report 22000477 (Version 1)
Quarter: 2023Q1

REPORT INFORMATION
  Report Type: Spontaneous
  Country: US (occurrence: None)
  Receive Date: 20230215
  Receipt Date: 20230215
  Transmission Date: 20230417
  Serious: Yes (Life-Threatening, Hospitalization, Other)
  Sender: FDA-Public Use
  Company Number: None

PATIENT
  Age: 68 Year
  Sex: Male
  Weight: 94.5 kg

DRUGS (5)
  1. METOPROLOL TARTRATE [Suspect]
     Active Substance: METOPROLOL TARTRATE
     Indication: Hypertension
     Dosage: 1 TABLET TWICE A DAY ORAL?
     Route: 048
  2. LEVOTHYROXINE [Concomitant]
     Active Substance: LEVOTHYROXINE
  3. AMLODIPINE [Concomitant]
     Active Substance: AMLODIPINE BESYLATE
  4. BESYLATE [Concomitant]
  5. CARVEDILOL [Concomitant]
     Active Substance: CARVEDILOL

REACTIONS (2)
  - Hypertension [None]
  - Condition aggravated [None]

NARRATIVE: CASE EVENT DATE: 20221123
